FAERS Safety Report 13798599 (Version 1)
Quarter: 2017Q3

REPORT INFORMATION
  Report Type: Spontaneous
  Country: GB (occurrence: GB)
  Receive Date: 20170727
  Receipt Date: 20170727
  Transmission Date: 20171127
  Serious: Yes (Hospitalization)
  Sender: FDA-Public Use
  Company Number: GB-LINDE GAS NORTH AMERICA LLC, LINDE GAS PUERTO RICO INC.-GB-LHC-2017075

PATIENT
  Age: 27 Year
  Sex: Female

DRUGS (1)
  1. NITROUS OXIDE (GENERIC) [Suspect]
     Active Substance: NITROUS OXIDE
     Indication: PAIN
     Dates: start: 19901024

REACTIONS (12)
  - Thyrotoxic crisis [Unknown]
  - Abdominal pain upper [Unknown]
  - Fatigue [Unknown]
  - Breast pain [Unknown]
  - Infectious thyroiditis [Unknown]
  - Goitre [Unknown]
  - Sensory loss [Unknown]
  - Diarrhoea [Unknown]
  - Ear infection [Unknown]
  - Mastitis [Unknown]
  - Circulatory collapse [Unknown]
  - Malaise [Unknown]
